FAERS Safety Report 16936925 (Version 6)
Quarter: 2021Q2

REPORT INFORMATION
  Report Type: Report from Study
  Country: CO (occurrence: CO)
  Receive Date: 20191018
  Receipt Date: 20210519
  Transmission Date: 20210716
  Serious: Yes (Death, Hospitalization, Other)
  Sender: FDA-Public Use
  Company Number: CO-ASTELLAS-2019US041426

PATIENT
  Age: 63 Year
  Sex: Male
  Weight: 52 kg

DRUGS (13)
  1. TACROLIMUS. [Suspect]
     Active Substance: TACROLIMUS
     Route: 048
     Dates: start: 20190923, end: 201910
  2. TACROLIMUS. [Suspect]
     Active Substance: TACROLIMUS
     Dosage: 2 MG, ONCE DAILY (2 CAPSULES OF 1 MG)
     Route: 048
  3. MYCOPHENOLATE [Concomitant]
     Active Substance: MYCOPHENOLIC ACID
     Indication: RENAL TRANSPLANT
     Route: 048
     Dates: start: 20000308, end: 20191003
  4. PREDNISOLONE. [Concomitant]
     Active Substance: PREDNISOLONE
     Indication: RENAL TRANSPLANT
     Route: 048
     Dates: start: 20000308
  5. ACYCLOVIR ABBOTT VIAL [Concomitant]
     Indication: HERPES VIRUS INFECTION
     Route: 048
     Dates: start: 20191003
  6. TACROLIMUS. [Suspect]
     Active Substance: TACROLIMUS
     Indication: RENAL TRANSPLANT
     Dosage: 2 MG, ONCE DAILY (2 CAPSULES OF 1 MG)
     Route: 048
     Dates: start: 20170923
  7. CARVEDILOL. [Concomitant]
     Active Substance: CARVEDILOL
     Route: 048
     Dates: start: 201910
  8. TACROLIMUS. [Suspect]
     Active Substance: TACROLIMUS
     Dosage: 1 MG, ONCE DAILY (1 CAPSULE OF 1 MG)
     Route: 048
     Dates: start: 201910
  9. PREDNISOLONE. [Concomitant]
     Active Substance: PREDNISOLONE
     Indication: SYSTEMIC LUPUS ERYTHEMATOSUS
     Route: 048
     Dates: start: 1998
  10. CARVEDILOL. [Concomitant]
     Active Substance: CARVEDILOL
     Route: 048
     Dates: start: 2011, end: 201910
  11. PREDNISOLONE. [Concomitant]
     Active Substance: PREDNISOLONE
     Route: 048
     Dates: start: 2000
  12. CARVEDILOL. [Concomitant]
     Active Substance: CARVEDILOL
     Indication: CARDIAC DISORDER
     Route: 048
     Dates: start: 2011
  13. FLUCONAZOLE. [Concomitant]
     Active Substance: FLUCONAZOLE
     Indication: HYPERSENSITIVITY PNEUMONITIS
     Route: 048
     Dates: start: 20191003

REACTIONS (18)
  - Acute myeloid leukaemia [Fatal]
  - Neutrophil count decreased [Not Recovered/Not Resolved]
  - Renal disorder [Recovered/Resolved]
  - Lip injury [Recovering/Resolving]
  - Blister [Recovered/Resolved]
  - Platelet count decreased [Not Recovered/Not Resolved]
  - Blood creatinine increased [Recovered/Resolved]
  - Pulmonary oedema [Recovering/Resolving]
  - Oedematous kidney [Recovered/Resolved]
  - Cataract [Unknown]
  - Vitamin B12 decreased [Recovered/Resolved]
  - Blood uric acid increased [Not Recovered/Not Resolved]
  - Haemoglobin decreased [Not Recovered/Not Resolved]
  - Transplant failure [Unknown]
  - Cardiac failure [Recovered/Resolved]
  - Skin infection [Recovered/Resolved]
  - Skin lesion [Recovered/Resolved]
  - Fall [Unknown]

NARRATIVE: CASE EVENT DATE: 20190928
